FAERS Safety Report 9640442 (Version 2)
Quarter: 2013Q4

REPORT INFORMATION
  Report Type: Spontaneous
  Country: US (occurrence: None)
  Receive Date: 20131021
  Receipt Date: 20131104
  Transmission Date: 20140711
  Serious: Yes (Other)
  Sender: FDA-Public Use
  Company Number: ACO_37121_2013

PATIENT
  Age: 36 Year
  Sex: Female
  Weight: 55.3 kg

DRUGS (4)
  1. AMPYRA [Suspect]
     Indication: GAIT DISTURBANCE
     Dates: start: 20120228
  2. GILENYA  (FINGOLIMOD HYDROCHLORIDE) [Concomitant]
  3. HYDROCODONE/ACETAMINOPHEN (HYDROCODONE BITARTRATE, PARACETAMOL) [Concomitant]
  4. NAPROXEN (NAPROXEN SODIUM) [Concomitant]

REACTIONS (9)
  - Dysstasia [None]
  - Hemiplegia [None]
  - Multiple sclerosis relapse [None]
  - Gait disturbance [None]
  - Fall [None]
  - Feeling hot [None]
  - Injury [None]
  - Drug effect decreased [None]
  - Drug ineffective [None]
